FAERS Safety Report 5213071-X (Version None)
Quarter: 2007Q1

REPORT INFORMATION
  Report Type: 
  Country: None (occurrence: None)
  Receive Date: 20070119
  Receipt Date: 20070109
  Transmission Date: 20070707
  Serious: Yes (Hospitalization)
  Sender: FDA-Public Use
  Company Number: 2007CG00053

PATIENT
  Age: 60 Year
  Sex: Female

DRUGS (2)
  1. HYTACAND [Suspect]
     Route: 048
     Dates: end: 20061123
  2. TERALITHE [Interacting]
     Route: 048
     Dates: end: 20061114

REACTIONS (2)
  - DRUG INTERACTION [None]
  - NERVOUS SYSTEM DISORDER [None]
